FAERS Safety Report 7583930-1 (Version None)
Quarter: 2011Q2

REPORT INFORMATION
  Report Type: 
  Country: None (occurrence: None)
  Receive Date: 20110630
  Receipt Date: 20110617
  Transmission Date: 20111010
  Serious: Yes (Other)
  Sender: FDA-Public Use
  Company Number: US-BAYER-2011-053512

PATIENT
  Age: 33 Year
  Sex: Female

DRUGS (1)
  1. MIRENA [Suspect]
     Indication: CONTRACEPTION
     Dosage: 20 MCG/24HR, CONT
     Route: 015
     Dates: start: 20090303, end: 20110524

REACTIONS (5)
  - DEVICE DISLOCATION [None]
  - MUSCLE SPASMS [None]
  - PROCEDURAL PAIN [None]
  - PAIN [None]
  - DEVICE RELATED INFECTION [None]
